FAERS Safety Report 22520591 (Version 1)
Quarter: 2023Q2

REPORT INFORMATION
  Report Type: Spontaneous
  Country: FI (occurrence: FI)
  Receive Date: 20230605
  Receipt Date: 20230605
  Transmission Date: 20230722
  Serious: Yes (Other)
  Sender: FDA-Public Use
  Company Number: None

PATIENT
  Age: 43 Year
  Sex: Female

DRUGS (2)
  1. LISDEXAMFETAMINE DIMESYLATE [Suspect]
     Active Substance: LISDEXAMFETAMINE DIMESYLATE
     Indication: Attention deficit hyperactivity disorder
     Dosage: UNK
     Route: 048
     Dates: start: 202112
  2. MELATONIN VITABALANS [Concomitant]
     Indication: Poor quality sleep
     Dosage: 10 MILLIGRAM, QD
     Route: 048
     Dates: start: 20211215

REACTIONS (9)
  - Arrhythmia [Recovering/Resolving]
  - Hypertensive crisis [Recovering/Resolving]
  - Malaise [Recovering/Resolving]
  - Peripheral coldness [Recovering/Resolving]
  - Skin burning sensation [Recovering/Resolving]
  - Heart rate increased [Recovering/Resolving]
  - Blood pressure increased [Recovering/Resolving]
  - Restlessness [Recovering/Resolving]
  - Headache [Recovering/Resolving]

NARRATIVE: CASE EVENT DATE: 20211201
